FAERS Safety Report 6623421-5 (Version None)
Quarter: 2010Q1

REPORT INFORMATION
  Report Type: 
  Country: None (occurrence: None)
  Receive Date: 20100310
  Receipt Date: 20091207
  Transmission Date: 20100710
  Serious: No
  Sender: FDA-Public Use
  Company Number: US-BIOGENIDEC-2009BI039727

PATIENT
  Age: 51 Year
  Sex: Female

DRUGS (3)
  1. AVONEX [Suspect]
     Indication: MULTIPLE SCLEROSIS
     Route: 030
     Dates: start: 20090106, end: 20091101
  2. AVONEX [Suspect]
     Route: 030
     Dates: start: 20051125, end: 20091125
  3. AVONEX [Suspect]
     Route: 030
     Dates: start: 20091201

REACTIONS (5)
  - BLOOD PRESSURE DECREASED [None]
  - DIZZINESS [None]
  - MUSCLE ATROPHY [None]
  - MUSCLE DISORDER [None]
  - PAIN IN EXTREMITY [None]
